FAERS Safety Report 11092452 (Version 2)
Quarter: 2015Q2

REPORT INFORMATION
  Report Type: Spontaneous
  Country: DE (occurrence: None)
  Receive Date: 20150504
  Receipt Date: 20150519
  Transmission Date: 20150821
  Serious: Yes (Other)
  Sender: FDA-Public Use
  Company Number: 2015FE01021

PATIENT
  Age: 5 Year
  Sex: Male
  Weight: 14.8 kg

DRUGS (1)
  1. ZOMACTON [Suspect]
     Active Substance: SOMATROPIN
     Indication: GROWTH HORMONE DEFICIENCY
     Dates: start: 20140203

REACTIONS (5)
  - Muscle twitching [None]
  - Muscle spasms [None]
  - Tonic clonic movements [None]
  - Paraesthesia [None]
  - Dizziness [None]

NARRATIVE: CASE EVENT DATE: 20140912
